FAERS Safety Report 5961042-8 (Version None)
Quarter: 2008Q4

REPORT INFORMATION
  Report Type: 
  Country: None (occurrence: None)
  Receive Date: 20081121
  Receipt Date: 20080923
  Transmission Date: 20090506
  Serious: No
  Sender: FDA-Public Use
  Company Number: A0747489A

PATIENT
  Age: 3 Year
  Sex: Female

DRUGS (1)
  1. ARRANON [Suspect]
     Indication: DRUG USE FOR UNKNOWN INDICATION
     Route: 042
     Dates: start: 20080908

REACTIONS (3)
  - ILL-DEFINED DISORDER [None]
  - PAIN IN EXTREMITY [None]
  - RASH [None]
